FAERS Safety Report 8445034-5 (Version None)
Quarter: 2012Q2

REPORT INFORMATION
  Report Type: 
  Country: None (occurrence: None)
  Receive Date: 20120606
  Receipt Date: 20120523
  Transmission Date: 20120825
  Serious: Yes (Hospitalization)
  Sender: FDA-Public Use
  Company Number: 2012SP017056

PATIENT
  Age: 62 Year
  Sex: Female

DRUGS (8)
  1. ANTEBATE [Concomitant]
  2. PRIMPERAN TAB [Concomitant]
  3. REBETOL [Suspect]
     Indication: HEPATITIS C
     Dosage: 600 MG;QD;PO, 400 MG;QD;PO
     Route: 048
     Dates: start: 20120228, end: 20120318
  4. REBETOL [Suspect]
     Indication: HEPATITIS C
     Dosage: 600 MG;QD;PO, 400 MG;QD;PO
     Route: 048
     Dates: start: 20120320
  5. PEG-INTRON [Suspect]
     Indication: HEPATITIS C
     Dosage: 80 MCG;QW;SC
     Route: 058
     Dates: start: 20120228
  6. TALION [Concomitant]
  7. TELAVIC (TELAPREVIR) (INVESTIGATIONAL DRUG) [Suspect]
     Indication: HEPATITIS C
     Dosage: 2250 MG;QD;PO 1500 MG;QD;PO
     Route: 048
     Dates: start: 20120228, end: 20120318
  8. TELAVIC (TELAPREVIR) (INVESTIGATIONAL DRUG) [Suspect]
     Indication: HEPATITIS C
     Dosage: 2250 MG;QD;PO 1500 MG;QD;PO
     Route: 048
     Dates: start: 20120320

REACTIONS (7)
  - RASH [None]
  - DIARRHOEA [None]
  - PYREXIA [None]
  - CYSTITIS [None]
  - NAUSEA [None]
  - STOMATITIS [None]
  - PHARYNGITIS [None]
